FAERS Safety Report 5002930-9 (Version None)
Quarter: 2006Q2

REPORT INFORMATION
  Report Type: 
  Country: None (occurrence: None)
  Receive Date: 20060516
  Receipt Date: 20060413
  Transmission Date: 20061013
  Serious: Yes (Death, Life-Threatening, Hospitalization, Other)
  Sender: FDA-Public Use
  Company Number: US-GLAXOSMITHKLINE-A0601678A

PATIENT
  Age: 70 Year
  Sex: Female

DRUGS (6)
  1. LAMICTAL [Suspect]
     Route: 048
     Dates: start: 20060201, end: 20060305
  2. ROCEPHIN [Suspect]
     Indication: DRUG USE FOR UNKNOWN INDICATION
     Route: 042
     Dates: start: 20060305, end: 20060305
  3. LEVODOPA [Concomitant]
  4. ZYPREXA [Concomitant]
  5. EXELON [Concomitant]
  6. SINEMET [Concomitant]
     Indication: PARKINSON'S DISEASE

REACTIONS (16)
  - CONJUNCTIVAL HYPERAEMIA [None]
  - DEHYDRATION [None]
  - DERMATITIS DIAPER [None]
  - DERMATITIS EXFOLIATIVE [None]
  - DYSPHAGIA [None]
  - GENERALISED ERYTHEMA [None]
  - HAEMOCONCENTRATION [None]
  - HYPERNATRAEMIA [None]
  - HYPOTENSION [None]
  - LIP EROSION [None]
  - MALNUTRITION [None]
  - RASH GENERALISED [None]
  - RENAL FAILURE [None]
  - RESPIRATORY FAILURE [None]
  - STOMATITIS [None]
  - URINARY INCONTINENCE [None]
